FAERS Safety Report 5661191-8 (Version None)
Quarter: 2008Q1

REPORT INFORMATION
  Report Type: 
  Country: None (occurrence: None)
  Receive Date: 20080311
  Receipt Date: 20080303
  Transmission Date: 20080703
  Serious: Yes (Hospitalization, Other)
  Sender: FDA-Public Use
  Company Number: SG-ABBOTT-08P-141-0440543-00

PATIENT
  Age: 26 Year
  Sex: Female
  Weight: 40 kg

DRUGS (1)
  1. SIBUTRAMINE [Suspect]
     Indication: WEIGHT CONTROL
     Route: 048

REACTIONS (2)
  - CATATONIA [None]
  - PSYCHOTIC DISORDER [None]
